FAERS Safety Report 20131042 (Version 2)
Quarter: 2021Q4

REPORT INFORMATION
  Report Type: Report from Study
  Country: BR (occurrence: BR)
  Receive Date: 20211130
  Receipt Date: 20211214
  Transmission Date: 20220303
  Serious: Yes (Death, Hospitalization, Other)
  Sender: FDA-Public Use
  Company Number: BR-BRISTOL-MYERS SQUIBB COMPANY-BMS-2021-128143

PATIENT
  Age: 69 Year
  Sex: Male

DRUGS (3)
  1. APIXABAN [Suspect]
     Active Substance: APIXABAN
     Indication: Cardiac disorder
     Dosage: 5 MILLIGRAM, BID
     Route: 065
  2. ENTRESTO [Concomitant]
     Active Substance: SACUBITRIL\VALSARTAN
     Indication: Product used for unknown indication
     Dosage: UNK
     Route: 065
     Dates: end: 202111
  3. ROSUVASTATIN [Concomitant]
     Active Substance: ROSUVASTATIN
     Indication: Product used for unknown indication
     Dosage: UNK
     Route: 065
     Dates: end: 202111

REACTIONS (3)
  - Cardiac arrest [Fatal]
  - Skin ulcer [Unknown]
  - Bacterial infection [Unknown]

NARRATIVE: CASE EVENT DATE: 20210801
